FAERS Safety Report 24465756 (Version 1)
Quarter: 2024Q4

REPORT INFORMATION
  Report Type: Report from Study
  Country: US (occurrence: US)
  Receive Date: 20241018
  Receipt Date: 20241018
  Transmission Date: 20250115
  Serious: No
  Sender: ROCHE
  Company Number: US-ROCHE-3535453

PATIENT
  Age: 60 Year
  Sex: Male

DRUGS (5)
  1. XOLAIR [Suspect]
     Active Substance: OMALIZUMAB
     Indication: Lymphoedema
     Dosage: 150 MG/ML, 150 MG
     Route: 058
     Dates: start: 202104
  2. XOLAIR [Suspect]
     Active Substance: OMALIZUMAB
     Indication: Eyelid oedema
  3. ERYTHROMYCIN [Concomitant]
     Active Substance: ERYTHROMYCIN
  4. PENICILLIN [Concomitant]
     Active Substance: PENICILLIN
  5. TETRACYCLINE [Concomitant]
     Active Substance: TETRACYCLINE

REACTIONS (2)
  - Off label use [Unknown]
  - No adverse event [Unknown]

NARRATIVE: CASE EVENT DATE: 20210401
